FAERS Safety Report 11659837 (Version 3)
Quarter: 2015Q4

REPORT INFORMATION
  Report Type: Report from Study
  Country: DE (occurrence: DE)
  Receive Date: 20151026
  Receipt Date: 20151123
  Transmission Date: 20160304
  Serious: Yes (Hospitalization)
  Sender: FDA-Public Use
  Company Number: DE-SA-2015SA163346

PATIENT
  Age: 74 Year
  Sex: Male
  Weight: 91 kg

DRUGS (4)
  1. ZALTRAP [Suspect]
     Active Substance: ZIV-AFLIBERCEPT
     Indication: COLORECTAL CANCER METASTATIC
     Route: 041
     Dates: start: 20150929, end: 20150929
  2. 5-FU [Concomitant]
     Active Substance: FLUOROURACIL
     Route: 041
  3. LEUCOVORIN. [Concomitant]
     Active Substance: LEUCOVORIN
     Route: 041
  4. IRINOTECAN [Concomitant]
     Active Substance: IRINOTECAN
     Route: 041

REACTIONS (6)
  - Disorientation [Unknown]
  - Asthenia [Unknown]
  - Gait disturbance [Unknown]
  - Confusional state [Unknown]
  - Nervous system disorder [Unknown]
  - Urinary incontinence [Unknown]

NARRATIVE: CASE EVENT DATE: 20151005
